FAERS Safety Report 6161170-0 (Version None)
Quarter: 2009Q2

REPORT INFORMATION
  Report Type: 
  Country: None (occurrence: None)
  Receive Date: 20090417
  Receipt Date: 20090417
  Transmission Date: 20091009
  Serious: Yes (Hospitalization)
  Sender: FDA-Public Use
  Company Number: None

PATIENT
  Age: 67 Year
  Sex: Male
  Weight: 108.8633 kg

DRUGS (3)
  1. DECITABINE 20MG/M2 D-15 (IV) [Suspect]
     Indication: MYELODYSPLASTIC SYNDROME
     Dosage: IV D1 -5
     Dates: start: 20090414, end: 20090415
  2. CYTARABINE [Suspect]
     Indication: MYELODYSPLASTIC SYNDROME
     Dosage: 3 SB  DL5
     Dates: start: 20090414, end: 20090415
  3. NEUPOGEN [Suspect]

REACTIONS (3)
  - BODY TEMPERATURE INCREASED [None]
  - HAEMOGLOBIN DECREASED [None]
  - INFUSION RELATED REACTION [None]
